FAERS Safety Report 16964748 (Version 3)
Quarter: 2024Q1

REPORT INFORMATION
  Report Type: Spontaneous
  Country: CA (occurrence: CA)
  Receive Date: 20191028
  Receipt Date: 20240329
  Transmission Date: 20240410
  Serious: Yes (Hospitalization, Other)
  Sender: FDA-Public Use
  Company Number: CA-009507513-1910CAN014949

PATIENT
  Age: 6 Year
  Sex: Male
  Weight: 23 kg

DRUGS (8)
  1. POSACONAZOLE [Suspect]
     Active Substance: POSACONAZOLE
     Indication: Antifungal prophylaxis
     Dosage: 100 MILLIGRAM, 1 EVERY 1 DAY
     Route: 048
     Dates: start: 20170626, end: 20170707
  2. RAPAMUNE [Suspect]
     Active Substance: SIROLIMUS
     Indication: Immunosuppression
     Dosage: 1 MILLIGRAM, 2 EVERY 1 DAY
     Route: 048
     Dates: start: 20170517
  3. CEFTRIAXONE [Concomitant]
     Active Substance: CEFTRIAXONE\CEFTRIAXONE SODIUM
     Dosage: 1700-1800MG EVERY 24 HOURS IV
     Route: 042
     Dates: start: 20170706, end: 20180122
  4. FAMCICLOVIR [Concomitant]
     Active Substance: FAMCICLOVIR
     Dosage: 250 MILLIGRAM, BID
     Route: 048
     Dates: start: 20170706
  5. RUXOLITINIB PHOSPHATE [Concomitant]
     Active Substance: RUXOLITINIB PHOSPHATE
     Dosage: 5 MILLIGRAM, BID
     Route: 048
     Dates: start: 20161017, end: 20170626
  6. PENICILLIN [Concomitant]
     Active Substance: PENICILLIN
     Dosage: 300 MILLIGRAM, BID
     Route: 048
     Dates: start: 20170706
  7. RITUXIMAB [Concomitant]
     Active Substance: RITUXIMAB
     Dosage: 340 MILLIGRAM; 4 DOSES
     Route: 042
     Dates: start: 201610, end: 201706
  8. SULFAMETHOXAZOLE\TRIMETHOPRIM [Concomitant]
     Active Substance: SULFAMETHOXAZOLE\TRIMETHOPRIM
     Dosage: 60-120MG, ONCE OR TWICE PERDAY, 3 DAYS PER WEEK
     Route: 048
     Dates: start: 20170706, end: 20170724

REACTIONS (5)
  - Drug interaction [Unknown]
  - Microangiopathy [Unknown]
  - Overdose [Unknown]
  - Off label use [Unknown]
  - Product use issue [Unknown]

NARRATIVE: CASE EVENT DATE: 20170706
